FAERS Safety Report 20477458 (Version 2)
Quarter: 2022Q1

REPORT INFORMATION
  Report Type: Report from Study
  Country: JP (occurrence: JP)
  Receive Date: 20220216
  Receipt Date: 20220225
  Transmission Date: 20220423
  Serious: Yes (Other)
  Sender: FDA-Public Use
  Company Number: JP-BIOGEN-2021BI01045518

PATIENT
  Age: 67 Year
  Sex: Female

DRUGS (2)
  1. TECFIDERA [Suspect]
     Active Substance: DIMETHYL FUMARATE
     Indication: Multiple sclerosis
     Route: 048
     Dates: start: 20181218
  2. TECFIDERA [Suspect]
     Active Substance: DIMETHYL FUMARATE
     Route: 048
     Dates: start: 20190107, end: 20210830

REACTIONS (4)
  - Myelodysplastic syndrome [Not Recovered/Not Resolved]
  - Pancytopenia [Unknown]
  - Platelet morphology abnormal [Unknown]
  - Megakaryocytes abnormal [Unknown]

NARRATIVE: CASE EVENT DATE: 20210824
